FAERS Safety Report 16706687 (Version 1)
Quarter: 2019Q3

REPORT INFORMATION
  Report Type: Spontaneous
  Country: US (occurrence: US)
  Receive Date: 20190815
  Receipt Date: 20190815
  Transmission Date: 20191004
  Serious: No
  Sender: FDA-Public Use
  Company Number: US-BRACCO-2019US02158

PATIENT
  Age: 30 Year
  Sex: Female

DRUGS (2)
  1. KINEVAC [Suspect]
     Active Substance: SINCALIDE
     Indication: HEPATOBILIARY SCAN
     Dosage: 1.2 ?G, SINGLE
     Route: 042
     Dates: start: 20190419, end: 20190419
  2. CHOLETEC [Suspect]
     Active Substance: TECHNETIUM TC-99M MEBROFENIN
     Indication: HEPATOBILIARY SCAN
     Dosage: 5.1 MCI, SINGLE
     Route: 042
     Dates: start: 20190419, end: 20190419

REACTIONS (2)
  - No adverse event [Unknown]
  - Exposure during pregnancy [Unknown]

NARRATIVE: CASE EVENT DATE: 20190419
